FAERS Safety Report 7351266-X (Version None)
Quarter: 2011Q1

REPORT INFORMATION
  Report Type: 
  Country: None (occurrence: None)
  Receive Date: 20110314
  Receipt Date: 20110221
  Transmission Date: 20110831
  Serious: Yes (Other)
  Sender: FDA-Public Use
  Company Number: ES-BAYER-2011-016083

PATIENT
  Age: 82 Year
  Sex: Male

DRUGS (4)
  1. AVODART [Concomitant]
     Indication: PROSTATIC ADENOMA
     Route: 048
  2. LOFTON [Concomitant]
     Route: 048
  3. ASPIRIN [Suspect]
     Indication: PRODUCT USED FOR UNKNOWN INDICATION
     Route: 048
     Dates: start: 20101125, end: 20101201
  4. ATORVASTATIN [Concomitant]
     Route: 048
     Dates: start: 20101202

REACTIONS (2)
  - URTICARIA [None]
  - ANGIOEDEMA [None]
